FAERS Safety Report 4506467-2 (Version None)
Quarter: 2004Q4

REPORT INFORMATION
  Report Type: 
  Country: None (occurrence: None)
  Receive Date: 20041122
  Receipt Date: 20041112
  Transmission Date: 20050328
  Serious: Yes (Hospitalization)
  Sender: FDA-Public Use
  Company Number: 200421319GDDC

PATIENT
  Age: 65 Year
  Sex: Female

DRUGS (6)
  1. FEXOFENADINE [Suspect]
     Route: 048
     Dates: end: 20041024
  2. SIMVASTATIN [Concomitant]
     Route: 048
  3. DIPYRIDAMOLE [Concomitant]
     Route: 048
  4. CARBAMAZEPINE [Concomitant]
     Route: 048
  5. ASPIRIN [Concomitant]
     Route: 048
  6. CITALOPRAM [Concomitant]
     Route: 048

REACTIONS (3)
  - DIZZINESS [None]
  - LOSS OF CONSCIOUSNESS [None]
  - SYNCOPE [None]
